FAERS Safety Report 9981592 (Version 1)
Quarter: 2014Q1

REPORT INFORMATION
  Report Type: Spontaneous
  Country: US (occurrence: None)
  Receive Date: 20140306
  Receipt Date: 20140306
  Transmission Date: 20141002
  Serious: Yes (Hospitalization, Other)
  Sender: FDA-Public Use
  Company Number: None

PATIENT
  Age: 42 Year
  Sex: Male
  Weight: 100 kg

DRUGS (1)
  1. TESTOSTERONE CYPIONATE 200MG/ML [Suspect]
     Indication: ANDROGEN DEFICIENCY
     Dosage: 20MG, EVERY 2 WEEKS, INTRAMUSCULAR
     Route: 030
     Dates: start: 20121001, end: 20140304

REACTIONS (1)
  - Osteonecrosis [None]
